FAERS Safety Report 6584681-2 (Version None)
Quarter: 2010Q1

REPORT INFORMATION
  Report Type: 
  Country: None (occurrence: None)
  Receive Date: 20100217
  Receipt Date: 20100203
  Transmission Date: 20100710
  Serious: Yes (Hospitalization, Other)
  Sender: FDA-Public Use
  Company Number: PHHY2009DE28645

PATIENT
  Sex: Male
  Weight: 58 kg

DRUGS (4)
  1. ACLASTA [Suspect]
     Indication: OSTEOPOROSIS
     Dosage: 5 MG ONCE YEARLY
     Dates: start: 20090601, end: 20090601
  2. PANTOZOL [Concomitant]
     Dosage: 40 MG, UNK
  3. ALBUTEROL [Concomitant]
  4. METAMIZOL [Concomitant]
     Indication: PAIN

REACTIONS (24)
  - ANAEMIA [None]
  - AORTIC ARTERIOSCLEROSIS [None]
  - ARTHRALGIA [None]
  - CHRONIC OBSTRUCTIVE PULMONARY DISEASE [None]
  - DECREASED APPETITE [None]
  - DYSURIA [None]
  - ENTEROBACTER INFECTION [None]
  - FLANK PAIN [None]
  - GASTRITIS [None]
  - GENERAL PHYSICAL HEALTH DETERIORATION [None]
  - HIATUS HERNIA [None]
  - HYPERADRENALISM [None]
  - HYPOCALCAEMIA [None]
  - HYPONATRAEMIA [None]
  - KIDNEY FIBROSIS [None]
  - METABOLIC ACIDOSIS [None]
  - OEDEMA PERIPHERAL [None]
  - PODAGRA [None]
  - RENAL CYST [None]
  - RENAL FAILURE [None]
  - URETERIC DILATATION [None]
  - URINARY RETENTION [None]
  - URINARY TRACT INFECTION [None]
  - WEIGHT DECREASED [None]
